FAERS Safety Report 20465406 (Version 1)
Quarter: 2022Q1

REPORT INFORMATION
  Report Type: Spontaneous
  Country: US (occurrence: US)
  Receive Date: 20220212
  Receipt Date: 20220212
  Transmission Date: 20220423
  Serious: No
  Sender: FDA-Public Use
  Company Number: US-GRANULES-US-2022GRASPO00013

PATIENT
  Age: 65 Year
  Sex: Female

DRUGS (3)
  1. ACETAMINOPHEN [Suspect]
     Active Substance: ACETAMINOPHEN
     Indication: Acne
     Route: 048
     Dates: start: 20220201
  2. ACETAMINOPHEN [Suspect]
     Active Substance: ACETAMINOPHEN
     Indication: Pain
  3. CHLORTHALIDONE [Concomitant]
     Active Substance: CHLORTHALIDONE
     Indication: Product used for unknown indication
     Route: 065

REACTIONS (1)
  - Insomnia [Unknown]

NARRATIVE: CASE EVENT DATE: 20220201
